FAERS Safety Report 21343360 (Version 2)
Quarter: 2022Q4

REPORT INFORMATION
  Report Type: Spontaneous
  Country: FR (occurrence: FR)
  Receive Date: 20220916
  Receipt Date: 20221007
  Transmission Date: 20230112
  Serious: Yes (Other)
  Sender: FDA-Public Use
  Company Number: None

PATIENT
  Age: 19 Year
  Sex: Female

DRUGS (4)
  1. MIANSERIN HYDROCHLORIDE [Suspect]
     Active Substance: MIANSERIN HYDROCHLORIDE
     Indication: Depression
     Dosage: UNIT DOSE :  30 MG, FREQUENCY TIME : 1 DAY, THERAPY END DATE : NASK
     Route: 065
     Dates: start: 20220809
  2. OMEPRAZOLE [Suspect]
     Active Substance: OMEPRAZOLE
     Indication: Gastrooesophageal reflux disease
     Dosage: UNIT DOSE : 10 MG, FREQUENCY TIME : 1 DAY, THERAPY END DATE : NASK
     Route: 065
     Dates: start: 20220813
  3. IMOVANE [Suspect]
     Active Substance: ZOPICLONE
     Indication: Insomnia
     Dosage: UNIT DOSE AND STRENGTH : 3.75 MG, FREQUENCY TIME : 1 DAY
     Route: 065
     Dates: start: 20220802
  4. AMISULPRIDE [Suspect]
     Active Substance: AMISULPRIDE
     Indication: Psychotic disorder
     Dosage: STRENGTH  :  100 MG/ML, UNIT DOSE : 50 MG, FREQUENCY TIME : 1 DAY, THERAPY END DATE : NASK
     Route: 065
     Dates: start: 20220809

REACTIONS (1)
  - Hepatic cytolysis [Recovering/Resolving]

NARRATIVE: CASE EVENT DATE: 20220825
